FAERS Safety Report 8739656 (Version 2)
Quarter: 2012Q4

REPORT INFORMATION
  Report Type: Spontaneous
  Country: US (occurrence: None)
  Receive Date: 20120805
  Receipt Date: 20120906
  Transmission Date: 20130627
  Serious: Yes (Death)
  Sender: FDA-Public Use
  Company Number: JPI-P-022988

PATIENT
  Age: 68 Year
  Sex: Male

DRUGS (1)
  1. XYREM [Suspect]
     Indication: PRODUCT USED FOR UNKNOWN INDICATION
     Dosage: (2.25 gm,2 in 1 d)
     Route: 048
     Dates: start: 20020916, end: 201204

REACTIONS (1)
  - ACCIDENT [None]
